FAERS Safety Report 7721668-8 (Version None)
Quarter: 2011Q3

REPORT INFORMATION
  Report Type: 
  Country: None (occurrence: None)
  Receive Date: 20110831
  Receipt Date: 20110824
  Transmission Date: 20111222
  Serious: Yes (Other)
  Sender: FDA-Public Use
  Company Number: US-GLAXOSMITHKLINE-A0942168A

PATIENT
  Age: 90 Year
  Sex: Female

DRUGS (7)
  1. LASIX [Concomitant]
  2. SIMAVASTATIN [Concomitant]
  3. SLEEPING PILL [Concomitant]
  4. LISINOPRIL [Concomitant]
  5. AGGRENOX [Concomitant]
  6. ADVAIR DISKUS 100/50 [Suspect]
     Indication: ASTHMA
     Dosage: 1PUFF TWICE PER DAY
     Route: 055
  7. ALBUTEROL SULFATE AUTOHALER [Concomitant]

REACTIONS (5)
  - WHEEZING [None]
  - ASTHMA [None]
  - DRUG INEFFECTIVE [None]
  - PRODUCT QUALITY ISSUE [None]
  - COUGH [None]
